FAERS Safety Report 15833526 (Version 1)
Quarter: 2019Q1

REPORT INFORMATION
  Report Type: Spontaneous
  Country: US (occurrence: US)
  Receive Date: 20190116
  Receipt Date: 20190116
  Transmission Date: 20190417
  Serious: Yes (Hospitalization)
  Sender: FDA-Public Use
  Company Number: None

PATIENT
  Age: 9 Year
  Sex: Male
  Weight: 28.1 kg

DRUGS (3)
  1. METHOTREXATE (PF) INJECTION [Suspect]
     Active Substance: METHOTREXATE SODIUM
     Indication: CHEMOTHERAPY
     Dosage: ?          OTHER FREQUENCY:ONCE;?
     Route: 037
  2. VINCRISTINE [Concomitant]
     Active Substance: VINCRISTINE
  3. SODIUM CHLORIDE 0.9% VIAL [Concomitant]

REACTIONS (3)
  - Lagophthalmos [None]
  - Somnolence [None]
  - Muscle disorder [None]

NARRATIVE: CASE EVENT DATE: 20190115
